FAERS Safety Report 7507551-1 (Version None)
Quarter: 2011Q2

REPORT INFORMATION
  Report Type: 
  Country: None (occurrence: None)
  Receive Date: 20110526
  Receipt Date: 20110517
  Transmission Date: 20111010
  Serious: Yes (Hospitalization, Other)
  Sender: FDA-Public Use
  Company Number: US-AMGEN-USASP2010013392

PATIENT
  Sex: Male
  Weight: 3.678 kg

DRUGS (6)
  1. ENBREL [Suspect]
     Dosage: 25 MG, 2 TIMES/WK
     Route: 063
     Dates: start: 20030101
  2. FLAXSEED OIL [Concomitant]
     Dosage: 3000 MG, Q4WK
     Route: 064
  3. ENBREL [Suspect]
     Dosage: 25 MG, 2 TIMES/WK
     Route: 064
     Dates: start: 20030101
  4. FISH OIL [Concomitant]
     Dosage: 1000 MG, Q4WK
     Route: 064
  5. METHYLDOPA [Concomitant]
     Dosage: 250 MG, TID
     Route: 064
     Dates: start: 20100401, end: 20110201
  6. PRENATAL VITAMINS                  /01549301/ [Concomitant]

REACTIONS (6)
  - DEHYDRATION [None]
  - WEIGHT DECREASE NEONATAL [None]
  - BACTERAEMIA [None]
  - URINARY TRACT INFECTION [None]
  - RESUSCITATION [None]
  - JAUNDICE [None]
